FAERS Safety Report 5151033-1 (Version None)
Quarter: 2006Q4

REPORT INFORMATION
  Report Type: 
  Country: None (occurrence: None)
  Receive Date: 20061115
  Receipt Date: 20061102
  Transmission Date: 20070319
  Serious: Yes (Other)
  Sender: FDA-Public Use
  Company Number: PT-BRISTOL-MYERS SQUIBB COMPANY-13572961

PATIENT
  Age: 89 Year
  Sex: Male

DRUGS (7)
  1. ERBITUX [Suspect]
     Indication: RECTAL CANCER
     Route: 042
     Dates: start: 20060921, end: 20060921
  2. COAPROVEL [Concomitant]
  3. HYPERIUM [Concomitant]
  4. LASIX [Concomitant]
  5. CARVEDILOL [Concomitant]
  6. KETESSE [Concomitant]
  7. PARIET [Concomitant]

REACTIONS (2)
  - PALPITATIONS [None]
  - VENTRICULAR EXTRASYSTOLES [None]
